FAERS Safety Report 7508173-9 (Version None)
Quarter: 2011Q2

REPORT INFORMATION
  Report Type: 
  Country: None (occurrence: None)
  Receive Date: 20110527
  Receipt Date: 20110316
  Transmission Date: 20111010
  Serious: No
  Sender: FDA-Public Use
  Company Number: US-MYLANLABS-2011S1005753

PATIENT
  Age: 53 Year
  Sex: Female

DRUGS (3)
  1. BUPROPION HYDROCHLORIDE [Suspect]
     Indication: OBSESSIVE-COMPULSIVE DISORDER
     Dates: start: 20110315, end: 20110315
  2. BUPROPION HYDROCHLORIDE [Suspect]
     Indication: DEPRESSION
     Dates: start: 20110315, end: 20110315
  3. INSULIN [Concomitant]
     Indication: DIABETES MELLITUS

REACTIONS (3)
  - HYPERSENSITIVITY [None]
  - RASH MACULAR [None]
  - EYE SWELLING [None]
